FAERS Safety Report 5500047-8 (Version None)
Quarter: 2007Q4

REPORT INFORMATION
  Report Type: 
  Country: None (occurrence: None)
  Receive Date: 20071024
  Receipt Date: 20071011
  Transmission Date: 20080405
  Serious: Yes (Hospitalization)
  Sender: FDA-Public Use
  Company Number: 2007AD000094

PATIENT
  Age: 7 Year
  Sex: Female

DRUGS (1)
  1. CEPHALEXIN [Suspect]
     Indication: IMPETIGO

REACTIONS (5)
  - DECREASED APPETITE [None]
  - HYPERTENSION [None]
  - IRRITABILITY [None]
  - POST STREPTOCOCCAL GLOMERULONEPHRITIS [None]
  - REVERSIBLE POSTERIOR LEUKOENCEPHALOPATHY SYNDROME [None]
